FAERS Safety Report 16966843 (Version 1)
Quarter: 2019Q4

REPORT INFORMATION
  Report Type: Spontaneous
  Country: US (occurrence: US)
  Receive Date: 20191028
  Receipt Date: 20191028
  Transmission Date: 20200122
  Serious: Yes (Hospitalization)
  Sender: FDA-Public Use
  Company Number: US-SA-2019SA294603

PATIENT
  Age: 78 Year
  Sex: Female
  Weight: 61.5 kg

DRUGS (23)
  1. CLOPIDOGREL BISULFATE. [Suspect]
     Active Substance: CLOPIDOGREL BISULFATE
     Dosage: 75 MG, QD TIME OF DOSE :08:00
     Route: 048
     Dates: start: 20190819, end: 20190819
  2. ONDANSETRON [Concomitant]
     Active Substance: ONDANSETRON
     Dosage: 4 MG, QD
     Route: 065
     Dates: start: 20191008, end: 20191008
  3. NITROGLYCERINE [Concomitant]
     Active Substance: NITROGLYCERIN
     Indication: PROPHYLAXIS
     Dosage: 0.5 MG, QD
     Route: 065
     Dates: start: 20191008, end: 20191008
  4. CLOPIDOGREL BISULFATE. [Suspect]
     Active Substance: CLOPIDOGREL BISULFATE
     Dosage: 75 MG, QD
     Route: 048
     Dates: start: 20190801, end: 20190818
  5. ACETYLSALICYLIC ACID [Suspect]
     Active Substance: ASPIRIN
     Dosage: 100 MG, QD
     Route: 048
     Dates: start: 20190801, end: 20190818
  6. ACETYLSALICYLIC ACID [Suspect]
     Active Substance: ASPIRIN
     Dosage: 100 MG, QD TIME OF DOSE: 8:00
     Route: 048
     Dates: start: 20190926, end: 20190926
  7. OMNIPAQUE [Concomitant]
     Active Substance: IOHEXOL
     Dosage: 110 UNK, QD
     Route: 065
     Dates: start: 20191008, end: 20191008
  8. FENTANYL. [Concomitant]
     Active Substance: FENTANYL
     Dosage: 25 MG, QD
     Route: 065
     Dates: start: 20191008, end: 20191008
  9. ACETYLSALICYLIC ACID [Suspect]
     Active Substance: ASPIRIN
     Dosage: 100 MG, QD TIME OF DOSE: 8:00
     Route: 048
     Dates: start: 20190819, end: 20190819
  10. METOPROLOL. [Concomitant]
     Active Substance: METOPROLOL
     Dosage: 25 MG, QD
     Route: 065
  11. PROPOFOL. [Concomitant]
     Active Substance: PROPOFOL
     Dosage: 200 MG, QD
     Route: 065
     Dates: start: 20191008, end: 20191008
  12. AMLODIPINE [Concomitant]
     Active Substance: AMLODIPINE BESYLATE
     Dosage: 5 MG, QD
     Route: 065
     Dates: start: 20190513
  13. POTASSIUM CHLORIDE. [Concomitant]
     Active Substance: POTASSIUM CHLORIDE
     Dosage: 20 UNK, QD
     Route: 065
     Dates: start: 20191008, end: 20191008
  14. PHENYLEPHRINE [Concomitant]
     Active Substance: PHENYLEPHRINE HYDROCHLORIDE
     Indication: PROPHYLAXIS
     Dosage: 400 UG, QD
     Route: 065
     Dates: start: 20191008, end: 20191008
  15. CLOPIDOGREL BISULFATE. [Suspect]
     Active Substance: CLOPIDOGREL BISULFATE
     Dosage: 75 MG, QD TIME OF DOSE :08:05
     Route: 048
     Dates: start: 20190731, end: 20190731
  16. EPHEDRINE. [Concomitant]
     Active Substance: EPHEDRINE
     Dosage: 25 MG, QD
     Route: 065
     Dates: start: 20191008, end: 20191008
  17. ACETYLSALICYLIC ACID [Suspect]
     Active Substance: ASPIRIN
     Dosage: 100 MG, QD TIME OF DOSE: 8:00
     Route: 048
     Dates: start: 20190925, end: 20190925
  18. ISOVUE 370 [Concomitant]
     Active Substance: IOPAMIDOL
     Dosage: 100 UNK, QD
     Route: 065
     Dates: start: 20190904, end: 20190904
  19. ACETYLSALICYLIC ACID [Suspect]
     Active Substance: ASPIRIN
     Dosage: 100 MG, QD TIME OF DOSE: 8:00
     Route: 048
     Dates: start: 20190731, end: 20190731
  20. ACETYLSALICYLIC ACID [Suspect]
     Active Substance: ASPIRIN
     Dosage: 100 MG, QD
     Route: 048
     Dates: start: 20190820, end: 20190924
  21. ATORVASTATIN [Concomitant]
     Active Substance: ATORVASTATIN
     Dosage: 40 MG, QD
     Route: 065
     Dates: start: 20190513
  22. LIDOCAINE. [Concomitant]
     Active Substance: LIDOCAINE
     Indication: PROPHYLAXIS
     Dosage: 70 MG, QD
     Route: 065
     Dates: start: 20191008, end: 20191008
  23. CEFAZOLIN [Concomitant]
     Active Substance: CEFAZOLIN
     Indication: PROPHYLAXIS
     Dosage: 1 G, QD
     Route: 065
     Dates: start: 20191008, end: 20191008

REACTIONS (2)
  - Cerebral artery stent insertion [Recovered/Resolved]
  - Cerebrovascular accident [Unknown]

NARRATIVE: CASE EVENT DATE: 20191008
